FAERS Safety Report 16128701 (Version 4)
Quarter: 2019Q3

REPORT INFORMATION
  Report Type: Report from Study
  Country: None (occurrence: US)
  Receive Date: 20190328
  Receipt Date: 20190828
  Transmission Date: 20191004
  Serious: Yes (Other)
  Sender: FDA-Public Use
  Company Number: US-ABBVIE-19K-163-2716196-00

PATIENT
  Age: 41 Year
  Sex: Female

DRUGS (1)
  1. HUMIRA [Suspect]
     Active Substance: ADALIMUMAB
     Indication: RHEUMATOID ARTHRITIS
     Dosage: CITRATE FREE (CF)
     Route: 058

REACTIONS (8)
  - Burning sensation [Unknown]
  - Laboratory test abnormal [Unknown]
  - Pain of skin [Not Recovered/Not Resolved]
  - Injection site bruising [Recovered/Resolved]
  - Joint swelling [Unknown]
  - Systemic lupus erythematosus rash [Not Recovered/Not Resolved]
  - Peripheral swelling [Unknown]
  - Skin irritation [Not Recovered/Not Resolved]

NARRATIVE: CASE EVENT DATE: 20190820
